FAERS Safety Report 9825211 (Version 1)
Quarter: 2014Q1

REPORT INFORMATION
  Report Type: Spontaneous
  Country: US (occurrence: None)
  Receive Date: 20140115
  Receipt Date: 20140115
  Transmission Date: 20141002
  Serious: Yes (Hospitalization)
  Sender: FDA-Public Use
  Company Number: None

PATIENT
  Age: 64 Year
  Sex: Female
  Weight: 63 kg

DRUGS (5)
  1. INTRON-A (INTERFERON ALFA-2B) [Suspect]
     Dates: end: 20140103
  2. DIAZEPAM [Concomitant]
  3. LEVOTHYROXINE [Concomitant]
  4. PROCHLORPERAZINE [Concomitant]
  5. ZOFRAN [Concomitant]

REACTIONS (5)
  - Dizziness [None]
  - Vertigo [None]
  - Dysstasia [None]
  - Gait disturbance [None]
  - Retinopathy [None]
